FAERS Safety Report 5866494-X (Version None)
Quarter: 2008Q3

REPORT INFORMATION
  Report Type: 
  Country: None (occurrence: None)
  Receive Date: 20080902
  Receipt Date: 20080902
  Transmission Date: 20090109
  Serious: Yes (Hospitalization)
  Sender: FDA-Public Use
  Company Number: PHEH1995US01374

PATIENT
  Sex: Male
  Weight: 115 kg

DRUGS (16)
  1. NEORAL [Suspect]
     Dosage: UNK
     Route: 048
     Dates: start: 19950821
  2. ASPIRIN TAB [Concomitant]
  3. ACYCLOVIR [Concomitant]
  4. PEPCID [Concomitant]
  5. OSCAL D (CALCIUM CARBONATE) [Concomitant]
  6. CLONIDINE [Concomitant]
  7. LASIX [Concomitant]
  8. NORVASC [Concomitant]
  9. HYDRALAZINE HCL [Concomitant]
  10. INSULIN REGULAR (INSULIN) [Concomitant]
  11. MYCELEX [Concomitant]
  12. INSULIN NPH (INSULIN HUMAN INJECTION, ISOPHANE) [Concomitant]
  13. SLOW MG (MAGNESIUM CHLORIDE ANHYDROUS) [Concomitant]
  14. PREDNISONE TAB [Concomitant]
  15. IMURAN [Concomitant]
  16. ASPIRIN [Concomitant]

REACTIONS (4)
  - CHILLS [None]
  - FATIGUE [None]
  - PNEUMONIA [None]
  - PYREXIA [None]
